FAERS Safety Report 20448358 (Version 6)
Quarter: 2022Q4

REPORT INFORMATION
  Report Type: Report from Study
  Country: CO (occurrence: CO)
  Receive Date: 20220209
  Receipt Date: 20221017
  Transmission Date: 20230112
  Serious: Yes (Hospitalization, Other)
  Sender: FDA-Public Use
  Company Number: CO-NOVARTISPH-NVSC2022CO026862

PATIENT
  Sex: Female
  Weight: 67 kg

DRUGS (4)
  1. ELTROMBOPAG OLAMINE [Suspect]
     Active Substance: ELTROMBOPAG OLAMINE
     Indication: Immune thrombocytopenia
     Dosage: 50 MG, QD
     Route: 048
     Dates: start: 202105
  2. HYDROXYCHLOROQUINE [Concomitant]
     Active Substance: HYDROXYCHLOROQUINE
     Indication: Systemic lupus erythematosus
     Dosage: 200 MG, QD
     Route: 048
     Dates: start: 2010
  3. AZATHIOPRINE [Concomitant]
     Active Substance: AZATHIOPRINE
     Indication: Systemic lupus erythematosus
     Dosage: UNK UNK, QD
     Route: 048
     Dates: start: 2010
  4. PREDNISOLONE [Concomitant]
     Active Substance: PREDNISOLONE
     Indication: Systemic lupus erythematosus
     Dosage: 20 MG, QD
     Route: 048
     Dates: start: 2010

REACTIONS (7)
  - Haemorrhage [Recovered/Resolved]
  - Systemic lupus erythematosus [Unknown]
  - Immune thrombocytopenia [Unknown]
  - Pain [Unknown]
  - Coagulopathy [Unknown]
  - Platelet disorder [Unknown]
  - Ovarian cyst [Unknown]
